FAERS Safety Report 5371733-8 (Version None)
Quarter: 2007Q2

REPORT INFORMATION
  Report Type: 
  Country: None (occurrence: None)
  Receive Date: 20070619
  Receipt Date: 20070416
  Transmission Date: 20071010
  Serious: No
  Sender: FDA-Public Use
  Company Number: 2007US000549

PATIENT
  Age: 76 Year
  Sex: Male

DRUGS (7)
  1. VESICARE [Suspect]
  2. INSULIN (INSULIN) [Concomitant]
  3. GLUCOPHAGE [Concomitant]
  4. ANTIHYPERTENSIVES [Concomitant]
  5. CHOLESTEROL AND TRIGLYCERIDE REDUCERS [Concomitant]
  6. MULTIVITAMIN [Concomitant]
  7. NEXIUM [Concomitant]

REACTIONS (1)
  - DRUG INEFFECTIVE [None]
